FAERS Safety Report 4731981-4 (Version None)
Quarter: 2005Q3

REPORT INFORMATION
  Report Type: 
  Country: None (occurrence: None)
  Receive Date: 20050722
  Receipt Date: 20040723
  Transmission Date: 20060218
  Serious: Yes (Disabling, Other)
  Sender: FDA-Public Use
  Company Number: 04-000475

PATIENT
  Age: 63 Year
  Sex: Female

DRUGS (1)
  1. FEMHRT [Suspect]
     Indication: MENOPAUSAL SYMPTOMS
     Dosage: 5/1000UG, QD, ORAL
     Route: 048
     Dates: start: 19850101, end: 20010101

REACTIONS (1)
  - BREAST CANCER [None]
